FAERS Safety Report 22265920 (Version 1)
Quarter: 2023Q2

REPORT INFORMATION
  Report Type: Spontaneous
  Country: FR (occurrence: FR)
  Receive Date: 20230428
  Receipt Date: 20230428
  Transmission Date: 20230721
  Serious: Yes (Other)
  Sender: FDA-Public Use
  Company Number: None

PATIENT
  Sex: Female

DRUGS (4)
  1. DIAZEPAM [Suspect]
     Active Substance: DIAZEPAM
     Indication: Product administration error
     Dosage: 10 MG, FREQUENCY TIME: 1 TOTAL
     Route: 065
     Dates: start: 20230228, end: 20230228
  2. ALFUZOSIN [Suspect]
     Active Substance: ALFUZOSIN
     Indication: Product administration error
     Dosage: 10 MG, FREQUENCY TIME: 1 TOTAL
     Route: 065
     Dates: start: 20230228, end: 20230228
  3. TRAZODONE HYDROCHLORIDE [Suspect]
     Active Substance: TRAZODONE HYDROCHLORIDE
     Indication: Product used for unknown indication
     Dosage: 200 MG, FREQUENCY TIME: 1 TOTAL
     Route: 065
     Dates: start: 20230228, end: 20230228
  4. VALIUM [Suspect]
     Active Substance: DIAZEPAM
     Indication: Product used for unknown indication
     Dosage: 10 MG, FREQUENCY TIME: 1 TOTAL
     Route: 065
     Dates: start: 20230228, end: 20230228

REACTIONS (5)
  - Wrong patient received product [Recovered/Resolved]
  - Bradycardia [Recovered/Resolved]
  - Somnolence [Recovered/Resolved]
  - Product administration error [Recovered/Resolved]
  - Hypotension [Recovered/Resolved]

NARRATIVE: CASE EVENT DATE: 20230228
